FAERS Safety Report 6349442-8 (Version None)
Quarter: 2009Q3

REPORT INFORMATION
  Report Type: 
  Country: None (occurrence: None)
  Receive Date: 20090911
  Receipt Date: 20090901
  Transmission Date: 20100115
  Serious: Yes (Other)
  Sender: FDA-Public Use
  Company Number: US-ABBOTT-09P-163-0594837-00

PATIENT
  Sex: Male

DRUGS (7)
  1. TRILIPIX [Suspect]
     Indication: BLOOD CHOLESTEROL INCREASED
     Route: 048
     Dates: start: 20090724, end: 20090820
  2. COUMADIN [Concomitant]
     Indication: BICUSPID AORTIC VALVE
     Dosage: 2.5MG DAILY 5 DAYS/WEEK, AND 3.5MG TWICE WEEKLY
  3. COUMADIN [Concomitant]
     Indication: HEART VALVE REPLACEMENT
  4. ASPIRIN [Concomitant]
     Indication: CARDIAC DISORDER
     Dates: end: 20090820
  5. PROBENECID [Concomitant]
     Indication: HYPERURICAEMIA
  6. METOPROLOL TARTRATE [Concomitant]
     Indication: DRUG USE FOR UNKNOWN INDICATION
  7. DILTIAZEM [Concomitant]
     Indication: DRUG USE FOR UNKNOWN INDICATION

REACTIONS (5)
  - ARTHRALGIA [None]
  - CONTUSION [None]
  - HAEMARTHROSIS [None]
  - HAEMATOCRIT DECREASED [None]
  - INTERNATIONAL NORMALISED RATIO INCREASED [None]
